FAERS Safety Report 4305502-4 (Version None)
Quarter: 2004Q1

REPORT INFORMATION
  Report Type: 
  Country: None (occurrence: None)
  Receive Date: 20040226
  Receipt Date: 20031106
  Transmission Date: 20041129
  Serious: No
  Sender: FDA-Public Use
  Company Number: US-BRISTOL-MYERS SQUIBB COMPANY-12429171

PATIENT
  Age: 44 Year
  Sex: Female
  Weight: 59 kg

DRUGS (5)
  1. ABILIFY [Suspect]
     Indication: MOOD ALTERED
     Route: 048
     Dates: start: 20031024
  2. DEPAKOTE [Concomitant]
  3. FOLIC ACID [Concomitant]
  4. KLONOPIN [Concomitant]
  5. LAMICTAL [Concomitant]

REACTIONS (2)
  - ABDOMINAL PAIN [None]
  - DECREASED APPETITE [None]
